FAERS Safety Report 9539509 (Version 1)
Quarter: 2013Q3

REPORT INFORMATION
  Report Type: Spontaneous
  Country: GB (occurrence: None)
  Receive Date: 20130917
  Receipt Date: 20130917
  Transmission Date: 20140515
  Serious: Yes (Other)
  Sender: FDA-Public Use
  Company Number: 2013P1019292

PATIENT
  Age: 18 Year
  Sex: Female

DRUGS (5)
  1. PLAQUENIL [Suspect]
     Indication: JUVENILE IDIOPATHIC ARTHRITIS
     Route: 048
     Dates: start: 201305
  2. METHOTREXATE [Concomitant]
  3. ETANERCEPT [Concomitant]
  4. FOLIC ACID [Concomitant]
  5. CALCICHEW (CALCIUM CARBONATE) [Concomitant]

REACTIONS (3)
  - Dyspnoea [None]
  - Chest discomfort [None]
  - Oesophageal spasm [None]
